FAERS Safety Report 9478122 (Version 1)
Quarter: 2013Q3

REPORT INFORMATION
  Report Type: Spontaneous
  Country: US (occurrence: None)
  Receive Date: 20130821
  Receipt Date: 20130821
  Transmission Date: 20140515
  Serious: Yes (Death, Hospitalization)
  Sender: FDA-Public Use
  Company Number: BU2013-001

PATIENT
  Age: 8 Day
  Sex: Male
  Weight: 2.78 kg

DRUGS (2)
  1. BUPHENYL [Suspect]
     Route: 048
     Dates: start: 20130608, end: 20130609
  2. CYCLINEX-1 [Concomitant]

REACTIONS (16)
  - Hyponatraemia [None]
  - Hyperammonaemia [None]
  - Multi-organ failure [None]
  - Convulsion [None]
  - Adrenal insufficiency [None]
  - Hypercapnia [None]
  - Wound [None]
  - Intraventricular haemorrhage [None]
  - Hypoxic-ischaemic encephalopathy [None]
  - Brain oedema [None]
  - Pneumatosis [None]
  - Portal venous gas [None]
  - Necrotising colitis [None]
  - Hypocalcaemia [None]
  - Hypotension [None]
  - Coagulopathy [None]
